FAERS Safety Report 7490384-2 (Version None)
Quarter: 2011Q2

REPORT INFORMATION
  Report Type: 
  Country: None (occurrence: None)
  Receive Date: 20110519
  Receipt Date: 20110503
  Transmission Date: 20111010
  Serious: No
  Sender: FDA-Public Use
  Company Number: US-B.I. PHARMACEUTICALS,INC./RIDGEFIELD-2011-BP-12269BP

PATIENT
  Age: 74 Year
  Sex: Female

DRUGS (5)
  1. SOTALOL HCL [Concomitant]
     Indication: ATRIAL FIBRILLATION
  2. PRADAXA [Suspect]
     Indication: ATRIAL FIBRILLATION
     Dosage: 300 MG
     Route: 048
     Dates: start: 20110401
  3. LASIX [Concomitant]
     Indication: DYSPNOEA
  4. DIAZIDE [Suspect]
     Dates: start: 20110401
  5. DIGOXIN [Concomitant]
     Indication: ATRIAL FIBRILLATION

REACTIONS (1)
  - JOINT SWELLING [None]
